FAERS Safety Report 21569660 (Version 1)
Quarter: 2022Q4

REPORT INFORMATION
  Report Type: Spontaneous
  Country: GB (occurrence: GB)
  Receive Date: 20221109
  Receipt Date: 20221109
  Transmission Date: 20230113
  Serious: Yes (Disabling)
  Sender: FDA-Public Use
  Company Number: GB-EXELIXIS-CABO-22055583

PATIENT
  Age: 38 Year
  Sex: Male
  Weight: 100 kg

DRUGS (5)
  1. CABOMETYX [Suspect]
     Active Substance: CABOZANTINIB S-MALATE
     Indication: Ewing^s sarcoma metastatic
     Dosage: 60 MG, QD
     Route: 048
     Dates: start: 20220909, end: 20221021
  2. DEXAMETHASONE [Concomitant]
     Active Substance: DEXAMETHASONE
     Indication: Pain
  3. BACLOFEN [Concomitant]
     Active Substance: BACLOFEN
     Indication: Pain
  4. DIAZEPAM [Concomitant]
     Active Substance: DIAZEPAM
     Indication: Anxiety
  5. MORPHINE SULFATE [Concomitant]
     Active Substance: MORPHINE SULFATE
     Indication: Pain

REACTIONS (2)
  - Oral candidiasis [Recovering/Resolving]
  - Off label use [Unknown]

NARRATIVE: CASE EVENT DATE: 20221017
